FAERS Safety Report 6589588-2 (Version None)
Quarter: 2010Q1

REPORT INFORMATION
  Report Type: 
  Country: None (occurrence: None)
  Receive Date: 20100212
  Receipt Date: 20100128
  Transmission Date: 20100710
  Serious: Yes (Other)
  Sender: FDA-Public Use
  Company Number: TRP_06763_2010

PATIENT
  Sex: Female

DRUGS (2)
  1. RIBASPHERE [Suspect]
     Indication: HEPATITIS C
     Dosage: DF ORAL
     Route: 048
     Dates: start: 20091002
  2. PEG-INTRON [Suspect]
     Indication: HEPATITIS C
     Dosage: DF SUBCUTANEOUS
     Route: 058
     Dates: start: 20091002

REACTIONS (3)
  - DEPRESSION [None]
  - FATIGUE [None]
  - WHITE BLOOD CELL COUNT DECREASED [None]
